FAERS Safety Report 4288884-1 (Version None)
Quarter: 2004Q1

REPORT INFORMATION
  Report Type: 
  Country: None (occurrence: None)
  Receive Date: 20040206
  Receipt Date: 20040206
  Transmission Date: 20041129
  Serious: Yes (Death)
  Sender: FDA-Public Use
  Company Number: None

PATIENT
  Sex: Female
  Weight: 83.9154 kg

DRUGS (1)
  1. EFFEXOR [Suspect]
     Indication: DEPRESSION
     Dosage: 37.5 MG TWICE DAIL ORAL
     Route: 048
     Dates: start: 19970420, end: 19970616

REACTIONS (3)
  - AGGRESSION [None]
  - GUN SHOT WOUND [None]
  - INTENTIONAL SELF-INJURY [None]
